FAERS Safety Report 12090978 (Version 5)
Quarter: 2016Q2

REPORT INFORMATION
  Report Type: Spontaneous
  Country: US (occurrence: US)
  Receive Date: 20160218
  Receipt Date: 20160415
  Transmission Date: 20160815
  Serious: Yes (Hospitalization, Other)
  Sender: FDA-Public Use
  Company Number: US-PFIZER INC-2016092375

PATIENT
  Age: 75 Year
  Sex: Male
  Weight: 95.25 kg

DRUGS (1)
  1. SUTENT [Suspect]
     Active Substance: SUNITINIB MALATE
     Indication: METASTATIC RENAL CELL CARCINOMA
     Dosage: 50 MG, CYCLIC (4 WEEKS ON/2 WEEKS OFF)
     Route: 048
     Dates: start: 20160122, end: 20160212

REACTIONS (13)
  - Asthenia [Recovered/Resolved]
  - Fatigue [Recovered/Resolved]
  - Disease progression [Unknown]
  - Metastatic renal cell carcinoma [Unknown]
  - Pancytopenia [Recovered/Resolved]
  - Renal failure [Unknown]
  - Dyskinesia [Not Recovered/Not Resolved]
  - Tremor [Not Recovered/Not Resolved]
  - Hypothyroidism [Unknown]
  - Blood glucose decreased [Unknown]
  - Benign prostatic hyperplasia [Unknown]
  - Pain [Recovered/Resolved]
  - Pain in extremity [Not Recovered/Not Resolved]

NARRATIVE: CASE EVENT DATE: 20160210
